FAERS Safety Report 9031783 (Version 2)
Quarter: 2013Q1

REPORT INFORMATION
  Report Type: Spontaneous
  Country: US (occurrence: US)
  Receive Date: 20130124
  Receipt Date: 20130222
  Transmission Date: 20140127
  Serious: Yes (Hospitalization)
  Sender: FDA-Public Use
  Company Number: US-ELI_LILLY_AND_COMPANY-US201301004248

PATIENT
  Age: 63 None
  Sex: Female

DRUGS (13)
  1. FORTEO [Suspect]
     Indication: OSTEOPOROSIS
  2. FORTEO [Suspect]
  3. LACTULOSE [Concomitant]
     Dosage: UNK, BID
  4. MIDORINE [Concomitant]
     Dosage: 5 MG, UNK
  5. LASIX [Concomitant]
     Dosage: 40 MG, UNK
  6. ALPRAZOLAM [Concomitant]
     Dosage: UNK
  7. CALCIUM CARBONATE/VITAMIN D3 [Concomitant]
     Dosage: UNK
  8. CLARITIN [Concomitant]
     Dosage: UNK
  9. CENTRUM SILVER [Concomitant]
     Dosage: UNK
  10. RHINOCORT [Concomitant]
     Dosage: UNK
     Route: 045
  11. ADVAIR [Concomitant]
     Dosage: UNK
  12. OMEPRAZOLE [Concomitant]
     Dosage: UNK
  13. TRAZODONE [Concomitant]
     Dosage: UNK

REACTIONS (2)
  - Oesophageal varices haemorrhage [Recovered/Resolved]
  - Pleural effusion [Unknown]
